FAERS Safety Report 10257149 (Version 1)
Quarter: 2014Q2

REPORT INFORMATION
  Report Type: Spontaneous
  Country: AU (occurrence: AU)
  Receive Date: 20140625
  Receipt Date: 20140625
  Transmission Date: 20141212
  Serious: Yes (Hospitalization)
  Sender: FDA-Public Use
  Company Number: AU-AMGEN INC.-AUSSP2014046362

PATIENT
  Age: 80 Year
  Sex: Female

DRUGS (9)
  1. PROLIA [Suspect]
     Indication: PRODUCT USED FOR UNKNOWN INDICATION
     Dosage: 60 MG, UNK
     Route: 058
     Dates: start: 20130815
  2. ROSUVASTATIN [Suspect]
     Indication: PRODUCT USED FOR UNKNOWN INDICATION
     Dosage: 40 MG, UNK
     Route: 048
  3. EZETIMIBE [Suspect]
     Indication: PRODUCT USED FOR UNKNOWN INDICATION
     Dosage: 10 MG, UNK
     Route: 048
  4. AMIODARONE HYDROCHLORIDE [Concomitant]
  5. ASPIRIN [Concomitant]
  6. CEPHALEXIN                         /00145501/ [Concomitant]
  7. CRANBERRY                          /01512301/ [Concomitant]
  8. KRILL OIL [Concomitant]
  9. VITAMIN E                          /00110501/ [Concomitant]

REACTIONS (2)
  - Rhabdomyolysis [Not Recovered/Not Resolved]
  - Hypocalcaemia [Not Recovered/Not Resolved]
